FAERS Safety Report 7551249-0 (Version None)
Quarter: 2011Q2

REPORT INFORMATION
  Report Type: 
  Country: None (occurrence: None)
  Receive Date: 20110616
  Receipt Date: 20110603
  Transmission Date: 20111010
  Serious: Yes (Other)
  Sender: FDA-Public Use
  Company Number: PHFR2011GB03509

PATIENT
  Sex: Male

DRUGS (1)
  1. CLOZAPINE [Suspect]
     Indication: SCHIZOPHRENIA
     Dates: start: 20101202

REACTIONS (4)
  - TACHYCARDIA [None]
  - RASH [None]
  - OCULOGYRIC CRISIS [None]
  - ABNORMAL BEHAVIOUR [None]
